FAERS Safety Report 11225942 (Version 1)
Quarter: 2015Q2

REPORT INFORMATION
  Report Type: Spontaneous
  Country: US (occurrence: US)
  Receive Date: 20150629
  Receipt Date: 20150629
  Transmission Date: 20150821
  Serious: Yes (Other)
  Sender: FDA-Public Use
  Company Number: US-BAYER-2015-362134

PATIENT
  Age: 28 Year
  Sex: Female

DRUGS (1)
  1. MIRENA [Suspect]
     Active Substance: LEVONORGESTREL
     Indication: CONTRACEPTION
     Dosage: 20 MCG/24HR, CONT
     Route: 015
     Dates: start: 201502

REACTIONS (7)
  - Coital bleeding [None]
  - Dizziness [None]
  - Post procedural haemorrhage [None]
  - Fatigue [None]
  - Abdominal pain lower [None]
  - Hypomenorrhoea [None]
  - Vomiting [None]

NARRATIVE: CASE EVENT DATE: 201502
